FAERS Safety Report 9004872 (Version 3)
Quarter: 2013Q1

REPORT INFORMATION
  Report Type: Spontaneous
  Country: US (occurrence: US)
  Receive Date: 20130109
  Receipt Date: 20130307
  Transmission Date: 20140127
  Serious: No
  Sender: FDA-Public Use
  Company Number: US-VERTEX PHARMACEUTICALS INC.-2013-000387

PATIENT
  Age: 59 None
  Sex: Male
  Weight: 95 kg

DRUGS (5)
  1. INCIVEK [Suspect]
     Indication: HEPATITIS C
     Dosage: 750 MG, TID
     Route: 048
     Dates: start: 20130107
  2. PEGINTERFERON ALFA [Suspect]
     Indication: HEPATITIS C
     Dosage: 180 ?G, QW
     Route: 058
     Dates: start: 20130107
  3. RIBASPHERE [Suspect]
     Indication: HEPATITIS C
     Dosage: 5 DF,BID
     Route: 048
     Dates: start: 20130107
  4. CANASA [Concomitant]
     Dosage: 500 MG, UNK
  5. IBUPROFEN [Concomitant]

REACTIONS (7)
  - Influenza like illness [Unknown]
  - Dizziness [Not Recovered/Not Resolved]
  - Headache [Not Recovered/Not Resolved]
  - Pain [Unknown]
  - Lethargy [Not Recovered/Not Resolved]
  - Anorectal discomfort [Not Recovered/Not Resolved]
  - Diarrhoea [Not Recovered/Not Resolved]
